FAERS Safety Report 24276006 (Version 1)
Quarter: 2024Q3

REPORT INFORMATION
  Report Type: Spontaneous
  Country: CZ (occurrence: CZ)
  Receive Date: 20240903
  Receipt Date: 20240903
  Transmission Date: 20241017
  Serious: Yes (Hospitalization, Other)
  Sender: TEVA
  Company Number: None

PATIENT
  Age: 82 Year
  Sex: Female

DRUGS (1)
  1. ROSUVASTATIN [Suspect]
     Active Substance: ROSUVASTATIN\ROSUVASTATIN CALCIUM
     Indication: Ischaemic stroke
     Route: 065

REACTIONS (7)
  - Liver disorder [Unknown]
  - Paraparesis [Unknown]
  - Walking disability [Unknown]
  - Pain in extremity [Unknown]
  - Myopathy [Unknown]
  - Rhabdomyolysis [Unknown]
  - Arthralgia [Unknown]

NARRATIVE: CASE EVENT DATE: 20240601
